FAERS Safety Report 7206048-6 (Version None)
Quarter: 2010Q4

REPORT INFORMATION
  Report Type: 
  Country: None (occurrence: None)
  Receive Date: 20101229
  Receipt Date: 20101229
  Transmission Date: 20110411
  Serious: No
  Sender: FDA-Public Use
  Company Number: None

PATIENT
  Sex: Female
  Weight: 48.0813 kg

DRUGS (2)
  1. PROPOXYPHENE HCL AND ACETAMINOPHEN [Suspect]
     Indication: PAIN
     Dosage: 1 TABLET 4 HRS. AS NEEDED
     Dates: start: 20000101, end: 20100101
  2. PROPOXYPHENE HCL AND ACETAMINOPHEN [Suspect]
     Indication: RHEUMATOID ARTHRITIS
     Dosage: 1 TABLET 4 HRS. AS NEEDED
     Dates: start: 20000101, end: 20100101

REACTIONS (1)
  - DIZZINESS [None]
